FAERS Safety Report 9553357 (Version 2)
Quarter: 2013Q4

REPORT INFORMATION
  Report Type: Spontaneous
  Country: BR (occurrence: BR)
  Receive Date: 20130925
  Receipt Date: 20131022
  Transmission Date: 20140711
  Serious: Yes (Other)
  Sender: FDA-Public Use
  Company Number: PHHY2013BR106152

PATIENT
  Age: 78 Year
  Sex: Male

DRUGS (8)
  1. FORASEQ [Suspect]
     Indication: COUGH
     Dosage: WHEN HE EXPERIENCED A CRISIS, TWICE PER DAY AND IF NECESSARY THREE TIMES PER DAY
  2. FORASEQ [Suspect]
     Indication: WHEEZING
  3. FORASEQ [Suspect]
     Indication: OFF LABEL USE
  4. SIMVASTATIN [Concomitant]
     Indication: BLOOD CHOLESTEROL INCREASED
     Dosage: 1 DF, DAILY
     Route: 048
  5. ACETYLSALICYLIC ACID [Concomitant]
     Indication: ANTICOAGULANT THERAPY
     Dosage: 100 MG (1 TABLET),DAILY
     Route: 048
  6. HYDROCHLOROTHIAZIDE [Concomitant]
     Indication: DIURETIC THERAPY
     Dosage: 25 MG (1 TABLET), DAILY
     Route: 048
  7. LOSARTAN [Concomitant]
     Indication: HYPERTENSION
     Dosage: 50 MG (TABLET), DAILY
     Route: 048
  8. AMINOPHYLLINE [Concomitant]
     Indication: WHEEZING
     Dosage: 100 MG (1 TABLET), DAILY
     Route: 048

REACTIONS (8)
  - Diabetes mellitus [Recovering/Resolving]
  - Blood glucose fluctuation [Recovering/Resolving]
  - Impaired healing [Not Recovered/Not Resolved]
  - Pterygium [Recovered/Resolved]
  - Eye irritation [Not Recovered/Not Resolved]
  - Cough [Recovered/Resolved]
  - Cataract [Not Recovered/Not Resolved]
  - Expired drug administered [Unknown]
